FAERS Safety Report 10720880 (Version 4)
Quarter: 2016Q1

REPORT INFORMATION
  Report Type: Spontaneous
  Country: US (occurrence: US)
  Receive Date: 20150119
  Receipt Date: 20160308
  Transmission Date: 20160525
  Serious: No
  Sender: FDA-Public Use
  Company Number: US-PFIZER INC-2015018920

PATIENT
  Age: 63 Year
  Sex: Male

DRUGS (1)
  1. SUTENT [Suspect]
     Active Substance: SUNITINIB MALATE
     Indication: RENAL CANCER
     Dosage: 50 MG, DAILY FOR 28 DAYS ON AND 14 DAYS OFF
     Dates: start: 20150101

REACTIONS (5)
  - Hyperkeratosis [Unknown]
  - Yellow skin [Unknown]
  - Diarrhoea [Unknown]
  - Blood pressure increased [Unknown]
  - Dyspepsia [Unknown]

NARRATIVE: CASE EVENT DATE: 201501
